FAERS Safety Report 9046903 (Version 1)
Quarter: 2013Q1

REPORT INFORMATION
  Report Type: Report from Study
  Country: CA (occurrence: CA)
  Receive Date: 20130204
  Receipt Date: 20130204
  Transmission Date: 20140127
  Serious: Yes (Other)
  Sender: FDA-Public Use
  Company Number: CA-JNJFOC-20130112366

PATIENT
  Age: 50 None
  Sex: Female
  Weight: 94 kg

DRUGS (14)
  1. REMICADE [Suspect]
     Indication: COLITIS ULCERATIVE
     Route: 042
     Dates: start: 20130121
  2. REMICADE [Suspect]
     Indication: COLITIS ULCERATIVE
     Route: 042
     Dates: start: 201301
  3. VENLAFAXINE [Concomitant]
     Route: 065
  4. METFORMIN [Concomitant]
     Route: 065
  5. JANUVIA [Concomitant]
     Route: 065
  6. ROSUVASTATIN [Concomitant]
     Route: 065
  7. GLICLAZIDE [Concomitant]
     Route: 065
  8. POTASSIUM [Concomitant]
     Route: 065
  9. ESOMEPRAZOL [Concomitant]
     Route: 065
  10. AZATHIOPRINE [Concomitant]
     Route: 065
  11. CALCIUM [Concomitant]
     Route: 065
  12. SALOFALK [Concomitant]
     Route: 065
  13. PREDNISONE [Concomitant]
     Route: 048
  14. ALL OTHER THERAPEUTICS [Concomitant]
     Route: 065

REACTIONS (2)
  - Breast pain [Unknown]
  - Infusion related reaction [Unknown]
